FAERS Safety Report 25070198 (Version 1)
Quarter: 2025Q1

REPORT INFORMATION
  Report Type: Spontaneous
  Country: FR (occurrence: FR)
  Receive Date: 20250312
  Receipt Date: 20250312
  Transmission Date: 20250408
  Serious: Yes (Hospitalization)
  Sender: GLAXOSMITHKLINE
  Company Number: None

PATIENT

DRUGS (3)
  1. LAMOTRIGINE [Suspect]
     Active Substance: LAMOTRIGINE
     Indication: Epilepsy
     Dosage: 300 MG, QD
     Route: 048
     Dates: start: 20250122, end: 20250129
  2. LAMOTRIGINE [Suspect]
     Active Substance: LAMOTRIGINE
     Indication: Meningioma
  3. LACOSAMIDE [Suspect]
     Active Substance: LACOSAMIDE
     Indication: Epilepsy
     Dosage: 300 MG, QD
     Route: 048

REACTIONS (6)
  - Confusional state [Recovered/Resolved]
  - Vision blurred [Recovered/Resolved]
  - Fall [Recovered/Resolved]
  - Nausea [Recovered/Resolved]
  - Vomiting [Recovered/Resolved]
  - Product prescribing error [Unknown]

NARRATIVE: CASE EVENT DATE: 20250122
